FAERS Safety Report 8520410-0 (Version None)
Quarter: 2012Q3

REPORT INFORMATION
  Report Type: 
  Country: None (occurrence: None)
  Receive Date: 20120719
  Receipt Date: 20120713
  Transmission Date: 20120928
  Serious: Yes (Death, Hospitalization, Other)
  Sender: FDA-Public Use
  Company Number: JP-ASTELLAS-2012JP006121

PATIENT
  Sex: Female
  Weight: 43.5 kg

DRUGS (5)
  1. VESICARE [Suspect]
     Indication: HYPERTONIC BLADDER
     Dosage: 5 MG, UID/QD
     Route: 048
     Dates: start: 20110323, end: 20120515
  2. URSO                               /00465701/ [Concomitant]
     Indication: AUTOIMMUNE HEPATITIS
     Dosage: 150 MG, UNKNOWN/D
     Route: 048
     Dates: start: 20120530
  3. LIPITOR [Suspect]
     Indication: HYPERLIPIDAEMIA
     Dosage: 10 MG, UID/QD
     Route: 048
     Dates: start: 20080611, end: 20120515
  4. ALENDRONATE SODIUM [Concomitant]
     Indication: OSTEOPOROSIS
     Dosage: 35 MG, WEEKLY
     Route: 048
     Dates: start: 20080126, end: 20120515
  5. PREDNISOLONE [Concomitant]
     Indication: HEPATIC FUNCTION ABNORMAL
     Dosage: 10 MG, BID
     Route: 065
     Dates: start: 20120619

REACTIONS (3)
  - POLYMYOSITIS [None]
  - HEPATIC FUNCTION ABNORMAL [None]
  - MYOCARDITIS [None]
